FAERS Safety Report 10737842 (Version 1)
Quarter: 2015Q1

REPORT INFORMATION
  Report Type: Report from Study
  Country: US (occurrence: US)
  Receive Date: 20150126
  Receipt Date: 20150126
  Transmission Date: 20150721
  Serious: Yes (Other)
  Sender: FDA-Public Use
  Company Number: US-GILEAD-2014-0126264

PATIENT
  Age: 59 Year
  Sex: Male

DRUGS (4)
  1. SOFOSBUVIR [Suspect]
     Active Substance: SOFOSBUVIR
     Indication: CHRONIC HEPATITIS C
     Dosage: UNK
     Route: 048
     Dates: start: 201411
  2. RIBASPHERE [Concomitant]
     Active Substance: RIBAVIRIN
     Dosage: UNK
     Route: 048
     Dates: start: 201411
  3. METHADONE [Concomitant]
     Active Substance: METHADONE HYDROCHLORIDE
     Dosage: 20 MG, UNK
     Route: 048
  4. KLONOPIN [Concomitant]
     Active Substance: CLONAZEPAM
     Dosage: UNK
     Route: 048

REACTIONS (12)
  - Abdominal discomfort [Unknown]
  - Therapeutic response unexpected [Unknown]
  - Energy increased [Unknown]
  - Coordination abnormal [Unknown]
  - Diarrhoea [Unknown]
  - Mental impairment [Unknown]
  - Fear [Unknown]
  - Drug effect decreased [Unknown]
  - Feeling abnormal [Unknown]
  - Confusional state [Unknown]
  - Malaise [Unknown]
  - Chills [Unknown]
